FAERS Safety Report 4296401-5 (Version None)
Quarter: 2004Q1

REPORT INFORMATION
  Report Type: 
  Country: None (occurrence: None)
  Receive Date: 20040213
  Receipt Date: 20040213
  Transmission Date: 20041129
  Serious: Yes (Hospitalization)
  Sender: FDA-Public Use
  Company Number: None

PATIENT
  Sex: Male
  Weight: 53.978 kg

DRUGS (11)
  1. OXYCODONE HCL [Suspect]
     Indication: PAIN
     Dosage: PO
     Route: 048
  2. NITROPATCH [Concomitant]
  3. NEURONTIN [Concomitant]
  4. SLO-MAG [Concomitant]
  5. REMERON [Concomitant]
  6. PLETAL [Concomitant]
  7. LASIX [Concomitant]
  8. ZOCOR [Concomitant]
  9. LISINOPRIL [Concomitant]
  10. TOPROL-XL [Concomitant]
  11. KLOR-KLON [Concomitant]

REACTIONS (1)
  - COMA [None]
